FAERS Safety Report 18279379 (Version 2)
Quarter: 2020Q4

REPORT INFORMATION
  Report Type: Other
  Country: US (occurrence: US)
  Receive Date: 20200917
  Receipt Date: 20201120
  Transmission Date: 20210113
  Serious: No
  Sender: FDA-Public Use
  Company Number: US-AMAG PHARMACEUTICALS, INC.-AMAG202003110

PATIENT

DRUGS (1)
  1. MAKENA [Suspect]
     Active Substance: HYDROXYPROGESTERONE CAPROATE
     Indication: FOETAL EXPOSURE DURING PREGNANCY
     Dosage: ONLY RECEIVED ONE DOSE
     Route: 058
     Dates: start: 20200731, end: 20200731

REACTIONS (1)
  - Foetal hypokinesia [Recovered/Resolved]

NARRATIVE: CASE EVENT DATE: 20200731
